FAERS Safety Report 22305159 (Version 6)
Quarter: 2024Q2

REPORT INFORMATION
  Report Type: Other
  Country: US (occurrence: None)
  Receive Date: 20230510
  Receipt Date: 20240523
  Transmission Date: 20240716
  Serious: Yes (Hospitalization)
  Sender: FDA-Public Use
  Company Number: US-ROCHE-3343180

PATIENT
  Age: 61 Year
  Sex: Female
  Weight: 74.91 kg

DRUGS (25)
  1. OCREVUS [Suspect]
     Active Substance: OCRELIZUMAB
     Indication: Relapsing multiple sclerosis
     Dosage: FIRST TWO INFUSION 2 WEEKS APART, THEN 600 MG EVERY 6 MONTHS, DATE OF TREATMENT: 25/OCT/2022?STRENGT
     Route: 042
     Dates: start: 20200820
  2. OCREVUS [Suspect]
     Active Substance: OCRELIZUMAB
     Indication: Pulmonary embolism
     Dosage: DATE OF TREATMENT 2022-10-25
     Route: 042
     Dates: start: 20200324
  3. OCREVUS [Suspect]
     Active Substance: OCRELIZUMAB
     Indication: Cor pulmonale acute
  4. GABAPENTIN [Concomitant]
     Active Substance: GABAPENTIN
     Indication: Muscle spasticity
     Route: 048
  5. METOPROLOL [Concomitant]
     Active Substance: METOPROLOL
     Indication: Hypertension
     Route: 048
  6. ALBUTEROL [Concomitant]
     Active Substance: ALBUTEROL
     Indication: Asthma
     Dosage: 90 MCG, 2 PUFFS PRN
     Route: 055
  7. ALBUTEROL [Concomitant]
     Active Substance: ALBUTEROL
     Indication: Pneumonia
  8. DUONEB [Concomitant]
     Active Substance: ALBUTEROL SULFATE\IPRATROPIUM BROMIDE
     Indication: Pneumonia
     Dosage: 0.5-2.5 MG/ML SOLUTION, TAKE 3ML VIA NEB EVERY 6 HOURS AS NEEDED
     Route: 055
  9. SEROQUEL [Concomitant]
     Active Substance: QUETIAPINE FUMARATE
     Dosage: AT BEDTIME
     Route: 048
  10. ELIQUIS [Concomitant]
     Active Substance: APIXABAN
     Indication: Factor V Leiden mutation
     Route: 048
  11. ROSUVASTATIN [Concomitant]
     Active Substance: ROSUVASTATIN
     Indication: Blood cholesterol
     Route: 048
  12. RABEPRAZOLE [Concomitant]
     Active Substance: RABEPRAZOLE
     Indication: Gastrooesophageal reflux disease
     Route: 048
  13. ALPRAZOLAM [Concomitant]
     Active Substance: ALPRAZOLAM
     Indication: Anxiety
     Dosage: MORNING
     Route: 048
  14. DALFAMPRIDINE [Concomitant]
     Active Substance: DALFAMPRIDINE
     Route: 048
  15. BACLOFEN [Concomitant]
     Active Substance: BACLOFEN
     Indication: Muscle spasms
     Route: 048
  16. CYANOCOBALAMIN [Concomitant]
     Active Substance: CYANOCOBALAMIN
     Indication: Vitamin B12 deficiency
     Dosage: 1000 MCG/ML
     Route: 030
  17. CYCLOBENZAPRINE [Concomitant]
     Active Substance: CYCLOBENZAPRINE
     Indication: Muscle spasms
     Route: 048
  18. MEMANTINE [Concomitant]
     Active Substance: MEMANTINE
     Route: 048
  19. NUEDEXTA [Concomitant]
     Active Substance: DEXTROMETHORPHAN HYDROBROMIDE\QUINIDINE SULFATE
     Indication: Affect lability
     Dosage: 20-10 MG
     Route: 048
  20. PROMETHAZINE [Concomitant]
     Active Substance: PROMETHAZINE HYDROCHLORIDE
     Route: 048
  21. TRAMADOL [Concomitant]
     Active Substance: TRAMADOL\TRAMADOL HYDROCHLORIDE
     Indication: Migraine
     Route: 048
  22. BUPROPION [Concomitant]
     Active Substance: BUPROPION
     Indication: Depression
     Route: 048
  23. CALCIUM [Concomitant]
     Active Substance: CALCIUM
     Indication: Intervertebral disc degeneration
     Route: 048
  24. CALCIUM [Concomitant]
     Active Substance: CALCIUM
     Indication: Osteopenia
  25. ERYTHROMYCIN [Concomitant]
     Active Substance: ERYTHROMYCIN

REACTIONS (6)
  - Pneumonia [Not Recovered/Not Resolved]
  - Pulmonary haemorrhage [Unknown]
  - Immunosuppression [Unknown]
  - COVID-19 [Not Recovered/Not Resolved]
  - Lung opacity [Unknown]
  - Pyrexia [Unknown]

NARRATIVE: CASE EVENT DATE: 20210103
